FAERS Safety Report 6441620-2 (Version None)
Quarter: 2009Q4

REPORT INFORMATION
  Report Type: 
  Country: None (occurrence: None)
  Receive Date: 20091113
  Receipt Date: 20091113
  Transmission Date: 20100525
  Serious: Yes (Life-Threatening)
  Sender: FDA-Public Use
  Company Number: None

PATIENT
  Age: 30 Year
  Sex: Female
  Weight: 41.7309 kg

DRUGS (1)
  1. PROZAC [Suspect]

REACTIONS (1)
  - SUICIDAL IDEATION [None]
